FAERS Safety Report 4601561-X (Version None)
Quarter: 2005Q1

REPORT INFORMATION
  Report Type: 
  Country: None (occurrence: None)
  Receive Date: 20050131
  Receipt Date: 20041201
  Transmission Date: 20050727
  Serious: Yes (Hospitalization, Other)
  Sender: FDA-Public Use
  Company Number: 200419205US

PATIENT

DRUGS (1)
  1. TELITHROMYCIN (KETEK) TABLETS [Suspect]
     Dosage: PO
     Route: 048

REACTIONS (3)
  - DYSPNOEA [None]
  - HYPERSENSITIVITY [None]
  - PRURITUS [None]
